FAERS Safety Report 8534004-4 (Version None)
Quarter: 2012Q3

REPORT INFORMATION
  Report Type: 
  Country: None (occurrence: None)
  Receive Date: 20120724
  Receipt Date: 20120716
  Transmission Date: 20120928
  Serious: Yes (Hospitalization)
  Sender: FDA-Public Use
  Company Number: AT-ROCHE-1088738

PATIENT
  Sex: Male
  Weight: 80 kg

DRUGS (3)
  1. XELODA [Suspect]
     Indication: RECTAL CANCER
     Route: 042
  2. OXALIPLATIN [Suspect]
     Indication: RECTAL CANCER
     Route: 042
  3. AVASTIN [Suspect]
     Indication: RECTAL CANCER
     Route: 048

REACTIONS (1)
  - ILEAL PERFORATION [None]
